FAERS Safety Report 16280695 (Version 1)
Quarter: 2019Q2

REPORT INFORMATION
  Report Type: Spontaneous
  Country: US (occurrence: US)
  Receive Date: 20190401
  Receipt Date: 20190401
  Transmission Date: 20190711
  Serious: Yes (Hospitalization)
  Sender: FDA-Public Use
  Company Number: None

PATIENT
  Age: 39 Year
  Sex: Female
  Weight: 86.18 kg

DRUGS (2)
  1. WARFARIN [Suspect]
     Active Substance: WARFARIN
     Indication: DEEP VEIN THROMBOSIS
     Route: 048
     Dates: start: 20130823
  2. WARFARIN [Suspect]
     Active Substance: WARFARIN
     Indication: FACTOR V DEFICIENCY
     Route: 048
     Dates: start: 20130823

REACTIONS (3)
  - Haemoglobin decreased [None]
  - Abdominal pain [None]
  - Vaginal haemorrhage [None]

NARRATIVE: CASE EVENT DATE: 20190124
